FAERS Safety Report 14858597 (Version 1)
Quarter: 2018Q2

REPORT INFORMATION
  Report Type: Spontaneous
  Country: FR (occurrence: FR)
  Receive Date: 20180508
  Receipt Date: 20180508
  Transmission Date: 20180711
  Serious: Yes (Other)
  Sender: FDA-Public Use
  Company Number: FR-MERCK KGAA-2047372

PATIENT
  Sex: Female

DRUGS (4)
  1. NOVOTHYROX [Suspect]
     Active Substance: LEVOTHYROXINE SODIUM
     Indication: THYROIDITIS
  2. NOVOTHYROX [Suspect]
     Active Substance: LEVOTHYROXINE SODIUM
  3. NOVOTHYROX [Suspect]
     Active Substance: LEVOTHYROXINE SODIUM
  4. NOVOTHYROX [Suspect]
     Active Substance: LEVOTHYROXINE SODIUM

REACTIONS (3)
  - Blood thyroid stimulating hormone decreased [None]
  - Overdose [None]
  - Hyperthyroidism [Not Recovered/Not Resolved]
